FAERS Safety Report 8343081-5 (Version None)
Quarter: 2012Q2

REPORT INFORMATION
  Report Type: 
  Country: None (occurrence: None)
  Receive Date: 20120508
  Receipt Date: 20120424
  Transmission Date: 20120825
  Serious: Yes (Death, Other)
  Sender: FDA-Public Use
  Company Number: US-MYLANLABS-2009AL002607

PATIENT
  Sex: Male
  Weight: 64.41 kg

DRUGS (22)
  1. BIAXIN [Concomitant]
  2. CYPROHEPTADINE HCL [Concomitant]
  3. FENTANYL [Concomitant]
  4. VICODIN [Concomitant]
  5. DETROL LA [Concomitant]
  6. AVAPRO [Concomitant]
  7. PERCOCET [Concomitant]
  8. PREVACID [Concomitant]
  9. VALIUM [Concomitant]
  10. ALBUTEROL [Concomitant]
  11. NASACORT [Concomitant]
  12. DIGOXIN [Suspect]
     Indication: CARDIOVASCULAR DISORDER
     Route: 048
     Dates: start: 20070901, end: 20081017
  13. PRILOSEC [Concomitant]
  14. CARISOPRODOL [Concomitant]
  15. FLUTICASONE FUROATE [Concomitant]
  16. VYTORIN [Concomitant]
  17. OXYCODONE HCL AND ACETAMINOPHEN [Concomitant]
  18. LORTAB [Concomitant]
  19. LEVAQUIN [Concomitant]
  20. ENABLEX [Concomitant]
  21. LEVITRA [Concomitant]
  22. ULTRAM [Concomitant]

REACTIONS (14)
  - DEATH [None]
  - MUSCLE CONTRACTURE [None]
  - ILL-DEFINED DISORDER [None]
  - CEREBROVASCULAR ACCIDENT [None]
  - MUSCULOSKELETAL STIFFNESS [None]
  - ECONOMIC PROBLEM [None]
  - CARDIOVASCULAR DISORDER [None]
  - BACK PAIN [None]
  - HYPERTENSION [None]
  - HYPERLIPIDAEMIA [None]
  - INJURY [None]
  - DRUG DEPENDENCE [None]
  - GASTROOESOPHAGEAL REFLUX DISEASE [None]
  - MUSCLE ATROPHY [None]
